FAERS Safety Report 11755636 (Version 1)
Quarter: 2015Q4

REPORT INFORMATION
  Report Type: Spontaneous
  Country: US (occurrence: None)
  Receive Date: 20151119
  Receipt Date: 20151119
  Transmission Date: 20160304
  Serious: No
  Sender: FDA-Public Use
  Company Number: US-MDT-ADR-2015-02199

PATIENT
  Age: 26 Year
  Sex: Male

DRUGS (2)
  1. COMPOUNDED BACLOFEN  INTRATHECAL 2000 MCG/ML [Suspect]
     Active Substance: BACLOFEN
     Indication: MUSCLE SPASTICITY
     Dosage: 340 MCG/DAY
  2. CLONIDINE 250 MCG/ML [Suspect]
     Active Substance: CLONIDINE
     Indication: MUSCLE SPASTICITY
     Dosage: 42.5 MCG/DAY

REACTIONS (3)
  - Muscle spasms [None]
  - Heart rate increased [None]
  - Condition aggravated [None]
